FAERS Safety Report 4683235-2 (Version None)
Quarter: 2005Q2

REPORT INFORMATION
  Report Type: 
  Country: None (occurrence: None)
  Receive Date: 20050602
  Receipt Date: 20050203
  Transmission Date: 20051028
  Serious: No
  Sender: FDA-Public Use
  Company Number: USA050289959

PATIENT
  Age: 49 Year
  Sex: Male

DRUGS (3)
  1. CYMBALTA [Suspect]
     Indication: DEPRESSION
     Dates: start: 20050120
  2. ZOLOFT [Concomitant]
  3. LAMICTAL [Concomitant]

REACTIONS (1)
  - DEPRESSION [None]
